FAERS Safety Report 6912673-X (Version None)
Quarter: 2010Q3

REPORT INFORMATION
  Report Type: 
  Country: None (occurrence: None)
  Receive Date: 20100806
  Receipt Date: 20080919
  Transmission Date: 20110219
  Serious: No
  Sender: FDA-Public Use
  Company Number: US-PFIZER INC-2008080065

PATIENT
  Sex: Female
  Weight: 79.09 kg

DRUGS (11)
  1. DETROL LA [Suspect]
     Indication: POLLAKIURIA
     Dates: start: 20080912
  2. DETROL LA [Suspect]
     Indication: DYSURIA
  3. DETROL LA [Suspect]
     Indication: URINARY RETENTION
  4. XANAX [Suspect]
  5. ACYCLOVIR [Concomitant]
  6. KLONOPIN [Concomitant]
  7. CELEXA [Concomitant]
  8. LEVOTHYROXINE [Concomitant]
  9. VESICARE [Concomitant]
  10. HYOSCYAMINE [Concomitant]
  11. OXYBUTYNIN CHLORIDE [Concomitant]

REACTIONS (2)
  - DRUG INEFFECTIVE [None]
  - PANIC REACTION [None]
